FAERS Safety Report 9538670 (Version 2)
Quarter: 2015Q1

REPORT INFORMATION
  Report Type: Spontaneous
  Country: FR (occurrence: FR)
  Receive Date: 20130920
  Receipt Date: 20150217
  Transmission Date: 20150721
  Serious: Yes (Life-Threatening, Hospitalization, Other)
  Sender: FDA-Public Use
  Company Number: FR-RANBAXY-2013R1-73355

PATIENT
  Age: 50 Year
  Sex: Female
  Weight: 140 kg

DRUGS (1)
  1. CLORAZEPATE [Suspect]
     Active Substance: CLORAZEPATE DIPOTASSIUM
     Indication: ANXIETY
     Dosage: UNK
     Route: 065

REACTIONS (2)
  - Drug-disease interaction [Recovered/Resolved]
  - Coma [Recovered/Resolved]
